FAERS Safety Report 6487985-7 (Version None)
Quarter: 2009Q4

REPORT INFORMATION
  Report Type: 
  Country: None (occurrence: None)
  Receive Date: 20091210
  Receipt Date: 20091130
  Transmission Date: 20100525
  Serious: Yes (Hospitalization, Other)
  Sender: FDA-Public Use
  Company Number: PHHY2009JP08303

PATIENT
  Sex: Female
  Weight: 47 kg

DRUGS (12)
  1. GLEEVEC [Suspect]
     Indication: GASTROINTESTINAL STROMAL TUMOUR
     Dosage: 400 MG/DAY
     Route: 048
     Dates: start: 20081111, end: 20081210
  2. GLEEVEC [Suspect]
     Dosage: 300 MG/DAY
     Route: 048
     Dates: start: 20081211, end: 20081225
  3. GLEEVEC [Suspect]
     Dosage: 200 MG/DAY
     Route: 048
     Dates: start: 20090122, end: 20090211
  4. GLEEVEC [Suspect]
     Dosage: 300 MG/DAY
     Dates: start: 20090212, end: 20090225
  5. GLEEVEC [Suspect]
     Dosage: 200 MG/DAY
     Route: 048
     Dates: start: 20090226, end: 20090305
  6. RINDERON [Concomitant]
     Indication: BRAIN NEOPLASM
     Dosage: 1 MG, UNK
     Route: 048
     Dates: start: 20071001, end: 20090318
  7. LASIX [Concomitant]
     Dosage: 20 MG, UNK
     Route: 048
     Dates: start: 20081120, end: 20090318
  8. ALDACTONE [Concomitant]
     Dosage: 25 MG, UNK
     Route: 048
     Dates: start: 20081120
  9. PARIET [Concomitant]
     Indication: PROPHYLAXIS AGAINST GASTROINTESTINAL ULCER
     Dosage: 10 MG, UNK
     Route: 048
     Dates: start: 20090212
  10. PREDONINE [Concomitant]
     Dosage: 30 MG, UNK
     Route: 048
     Dates: start: 20090323
  11. TEMODAL [Concomitant]
     Indication: BRAIN STEM GLIOMA
  12. STEROIDS NOS [Concomitant]

REACTIONS (18)
  - ABASIA [None]
  - BLOOD GLUCOSE INCREASED [None]
  - BLOOD PH INCREASED [None]
  - COMPRESSION FRACTURE [None]
  - HEPATOMEGALY [None]
  - HYPERBILIRUBINAEMIA [None]
  - HYPOAESTHESIA [None]
  - INTERSTITIAL LUNG DISEASE [None]
  - JAUNDICE [None]
  - LIVER DISORDER [None]
  - LYMPHOCYTE COUNT DECREASED [None]
  - MUSCULAR WEAKNESS [None]
  - NEUTROPHIL COUNT INCREASED [None]
  - OEDEMA [None]
  - OSTEOPOROSIS [None]
  - PAIN IN EXTREMITY [None]
  - PLATELET COUNT DECREASED [None]
  - SCIATICA [None]
